FAERS Safety Report 7623978-1 (Version None)
Quarter: 2011Q3

REPORT INFORMATION
  Report Type: 
  Country: None (occurrence: None)
  Receive Date: 20110720
  Receipt Date: 20110531
  Transmission Date: 20111222
  Serious: No
  Sender: FDA-Public Use
  Company Number: US-BRISTOL-MYERS SQUIBB COMPANY-15792310

PATIENT
  Age: 5 Decade
  Sex: Male

DRUGS (1)
  1. YERVOY [Suspect]
     Dosage: OVER 90MIN,INFUSION
     Route: 042
     Dates: start: 20110501

REACTIONS (2)
  - URTICARIA [None]
  - LIP SWELLING [None]
